FAERS Safety Report 5880269-7 (Version None)
Quarter: 2008Q3

REPORT INFORMATION
  Report Type: 
  Country: None (occurrence: None)
  Receive Date: 20080912
  Receipt Date: 20080904
  Transmission Date: 20090109
  Serious: Yes (Hospitalization)
  Sender: FDA-Public Use
  Company Number: PHEH2008US07550

PATIENT
  Sex: Female
  Weight: 88.435 kg

DRUGS (27)
  1. RECLAST [Suspect]
     Indication: OSTEOPOROSIS
     Dosage: 5 MG, YEARLY
     Dates: start: 20080610
  2. ESTRACE [Concomitant]
     Indication: OSTEOPOROSIS
     Dosage: 2 MG, QD
     Route: 048
  3. ESTRACE [Concomitant]
     Indication: MENOPAUSE
  4. SYNTHROID [Concomitant]
     Indication: HYPOTHYROIDISM
     Dosage: 0.125 MG, QD
     Route: 048
  5. ZOLOFT [Concomitant]
     Indication: DEPRESSION
     Dosage: 150 MG, QD
     Route: 048
  6. METHADONE HCL [Concomitant]
     Indication: PAIN
     Dosage: 20 MG, BID
     Route: 048
  7. TRAZODONE HCL [Concomitant]
     Indication: DEPRESSION
     Dosage: 150 MG, QHS
     Route: 048
  8. PLAQUENIL [Concomitant]
     Indication: ARTHROPATHY
     Dosage: 200 MG, BID
     Route: 048
  9. PRILOSEC [Concomitant]
     Indication: GASTROOESOPHAGEAL REFLUX DISEASE
     Dosage: 20 MG, BID
     Route: 048
  10. KLONOPIN [Concomitant]
     Indication: DEPRESSION
     Dosage: 0.5 MG, TID
  11. KLONOPIN [Concomitant]
     Indication: TENSION
     Dosage: 0.5 MG, QHS
  12. MICRO-K [Concomitant]
     Dosage: 10 MEQ, QD
     Route: 048
  13. MICRO-K [Concomitant]
     Dosage: 10 MEQ, BID
     Dates: end: 20080811
  14. PROVIGIL [Concomitant]
     Indication: SLEEP APNOEA SYNDROME
     Dosage: 200 MG, QD
  15. AMBIEN [Concomitant]
     Dosage: 10 MG, QHS
     Route: 048
  16. CALCIUM WITH VITAMIN D [Concomitant]
     Dosage: 600 MG, TID
     Route: 048
  17. CALCIUM WITH VITAMIN D [Concomitant]
     Dosage: NO TREATMENT
     Dates: start: 20080610, end: 20080620
  18. CALCIUM WITH VITAMIN D [Concomitant]
     Dosage: 600 MG, BID
     Route: 048
     Dates: start: 20080620, end: 20080806
  19. XANAX [Concomitant]
     Indication: DEPRESSION
     Dosage: 0.5 MG, PRN
  20. BENADRYL ^ACHE^ [Concomitant]
     Dosage: 50 MG, UNK
  21. ATIVAN [Concomitant]
     Dosage: 0.5 MG, BID PRN
  22. FOLIC ACID [Concomitant]
     Dosage: 1 MG, UNK
  23. BONIVA [Concomitant]
     Indication: OSTEOPOROSIS
     Dosage: 150 MG, MONTHLY
  24. MULTI-VITAMINS [Concomitant]
     Dosage: UNK
  25. VITAMIN B-12 [Concomitant]
     Dosage: UNK, MONTHLY
  26. VIACTIV                                 /USA/ [Concomitant]
     Indication: OSTEOPOROSIS
     Dosage: 600 MG, TID
  27. TUMS [Concomitant]

REACTIONS (36)
  - ANION GAP INCREASED [None]
  - ANOREXIA [None]
  - ASTHENIA [None]
  - BLOOD ALBUMIN DECREASED [None]
  - BLOOD CHLORIDE DECREASED [None]
  - BLOOD CHLORIDE INCREASED [None]
  - BLOOD CREATININE INCREASED [None]
  - BLOOD GLUCOSE INCREASED [None]
  - BLOOD MAGNESIUM DECREASED [None]
  - BLOOD POTASSIUM DECREASED [None]
  - BLOOD POTASSIUM INCREASED [None]
  - BLOOD SODIUM DECREASED [None]
  - BLOOD UREA INCREASED [None]
  - CARBON DIOXIDE DECREASED [None]
  - CULTURE URINE POSITIVE [None]
  - ELECTROCARDIOGRAM ABNORMAL [None]
  - FATIGUE [None]
  - GENERAL PHYSICAL HEALTH DETERIORATION [None]
  - GLOMERULAR FILTRATION RATE DECREASED [None]
  - HAEMATOCRIT DECREASED [None]
  - HAEMOGLOBIN DECREASED [None]
  - HEADACHE [None]
  - HYPOCALCAEMIA [None]
  - LYMPHOCYTE COUNT DECREASED [None]
  - MYALGIA [None]
  - MYOGLOBIN BLOOD INCREASED [None]
  - NAUSEA [None]
  - NEUTROPHIL COUNT INCREASED [None]
  - OEDEMA PERIPHERAL [None]
  - OLIGURIA [None]
  - PROTEIN TOTAL DECREASED [None]
  - RED BLOOD CELL COUNT DECREASED [None]
  - RENAL FAILURE ACUTE [None]
  - URINARY TRACT INFECTION BACTERIAL [None]
  - VITAMIN D DECREASED [None]
  - WHITE BLOOD CELLS URINE POSITIVE [None]
